FAERS Safety Report 19305365 (Version 1)
Quarter: 2021Q2

REPORT INFORMATION
  Report Type: Spontaneous
  Country: US (occurrence: US)
  Receive Date: 20210526
  Receipt Date: 20210526
  Transmission Date: 20210717
  Serious: No
  Sender: FDA-Public Use
  Company Number: US-35507-2021-07524

PATIENT
  Age: 64 Year
  Sex: Male
  Weight: 91 kg

DRUGS (21)
  1. MEMANTINE. [Suspect]
     Active Substance: MEMANTINE
     Indication: OCCIPITAL NEURALGIA
     Dosage: 5 MILLIGRAM (AT BEDTIME)
     Route: 048
  2. MEMANTINE. [Suspect]
     Active Substance: MEMANTINE
     Dosage: 10 MILLIGRAM, BID
     Route: 048
  3. TOPIRAMAT [Suspect]
     Active Substance: TOPIRAMATE
     Indication: OCCIPITAL NEURALGIA
     Dosage: UNK
     Route: 065
  4. ATORVASTATIN [Concomitant]
     Active Substance: ATORVASTATIN
     Indication: PRODUCT USED FOR UNKNOWN INDICATION
     Dosage: 20 MILLIGRAM, QD
     Route: 048
  5. IBUPROFEN. [Concomitant]
     Active Substance: IBUPROFEN
     Indication: OCCIPITAL NEURALGIA
     Dosage: 600 MILLIGRAM, QID AS NEEDED
     Route: 048
  6. OXYCODONE [Concomitant]
     Active Substance: OXYCODONE
     Indication: PRODUCT USED FOR UNKNOWN INDICATION
     Dosage: 15 MILLIGRAM
     Route: 048
  7. ZOLPIDEM [Concomitant]
     Active Substance: ZOLPIDEM TARTRATE
     Indication: PRODUCT USED FOR UNKNOWN INDICATION
     Dosage: 10 MILLIGRAM, QD
     Route: 048
  8. SUMATRIPTAN. [Concomitant]
     Active Substance: SUMATRIPTAN
     Indication: OCCIPITAL NEURALGIA
     Dosage: 25 MILLIGRAM, QD AS NEEDED
     Route: 048
  9. LIDOCAINE. [Concomitant]
     Active Substance: LIDOCAINE
     Indication: OCCIPITAL NEURALGIA
     Dosage: UNK
     Route: 065
  10. CARISOPRODOL. [Concomitant]
     Active Substance: CARISOPRODOL
     Indication: PRODUCT USED FOR UNKNOWN INDICATION
     Dosage: 350 MILLIGRAM, QD
     Route: 048
  11. TRIAMCINOLONE [Concomitant]
     Active Substance: TRIAMCINOLONE
     Indication: OCCIPITAL NEURALGIA
     Dosage: 10 MILLIGRAM
     Route: 065
  12. METHOCARBAMOL. [Concomitant]
     Active Substance: METHOCARBAMOL
     Indication: PRODUCT USED FOR UNKNOWN INDICATION
     Dosage: 1500 MILLIGRAM, TID
     Route: 048
  13. DULOXETINE. [Concomitant]
     Active Substance: DULOXETINE
     Indication: OCCIPITAL NEURALGIA
     Dosage: 60 MILLIGRAM, QD
     Route: 048
  14. METOPROLOL. [Concomitant]
     Active Substance: METOPROLOL
     Indication: PRODUCT USED FOR UNKNOWN INDICATION
     Dosage: 50 MILLIGRAM, QD
     Route: 048
  15. GABAPENTIN. [Suspect]
     Active Substance: GABAPENTIN
     Indication: OCCIPITAL NEURALGIA
     Dosage: UNK
     Route: 065
  16. TAMSULOSIN [Concomitant]
     Active Substance: TAMSULOSIN
     Indication: PRODUCT USED FOR UNKNOWN INDICATION
     Dosage: 0.4 MILLIGRAM, QD
     Route: 048
  17. PREGABALIN. [Suspect]
     Active Substance: PREGABALIN
     Indication: OCCIPITAL NEURALGIA
     Dosage: UNK
     Route: 065
  18. NORTRIPTYLINE [Suspect]
     Active Substance: NORTRIPTYLINE
     Indication: OCCIPITAL NEURALGIA
     Dosage: 100 MILLIGRAM, QD
     Route: 048
  19. TEMAZEPAM. [Concomitant]
     Active Substance: TEMAZEPAM
     Indication: PRODUCT USED FOR UNKNOWN INDICATION
     Dosage: 30 MILLIGRAM, QD
     Route: 048
  20. FENOFIBRATE. [Concomitant]
     Active Substance: FENOFIBRATE
     Indication: PRODUCT USED FOR UNKNOWN INDICATION
     Dosage: 145 MILLIGRAM, QD
     Route: 048
  21. FENTANYL. [Suspect]
     Active Substance: FENTANYL
     Indication: OCCIPITAL NEURALGIA
     Dosage: UNK
     Route: 062

REACTIONS (3)
  - Off label use [Unknown]
  - Drug ineffective [Unknown]
  - Headache [Unknown]
